FAERS Safety Report 21930296 (Version 1)
Quarter: 2023Q1

REPORT INFORMATION
  Report Type: Spontaneous
  Country: CA (occurrence: None)
  Receive Date: 20230131
  Receipt Date: 20230131
  Transmission Date: 20230417
  Serious: Yes (Other)
  Sender: FDA-Public Use
  Company Number: CA-PFIZER INC-202300037869

PATIENT
  Age: 75 Year
  Sex: Female

DRUGS (3)
  1. METHOTREXATE [Suspect]
     Active Substance: METHOTREXATE
     Indication: Rheumatoid arthritis
     Route: 065
  2. ENBREL [Suspect]
     Active Substance: ETANERCEPT
     Indication: Rheumatoid arthritis
     Route: 065
  3. ABRILADA [Concomitant]
     Active Substance: ADALIMUMAB-AFZB
     Dosage: 40 MG, IN 0.8 ML STERILE SOLUTION (50 MG/ML), PREFILLED PEN F (INCOMPLETE INFORMATION)
     Route: 058

REACTIONS (6)
  - Hepatic cirrhosis [Unknown]
  - Haemorrhage [Unknown]
  - Morphoea [Unknown]
  - Loss of personal independence in daily activities [Unknown]
  - Illness [Unknown]
  - COVID-19 [Unknown]
